FAERS Safety Report 10712295 (Version 1)
Quarter: 2015Q1

REPORT INFORMATION
  Report Type: Spontaneous
  Country: US (occurrence: US)
  Receive Date: 20150115
  Receipt Date: 20150115
  Transmission Date: 20150721
  Serious: Yes (Death)
  Sender: FDA-Public Use
  Company Number: US-JNJFOC-20150107957

PATIENT
  Sex: Female

DRUGS (5)
  1. ACETAMINOPHEN. [Suspect]
     Active Substance: ACETAMINOPHEN
     Route: 048
  2. DIPHENHYDRAMINE [Suspect]
     Active Substance: DIPHENHYDRAMINE
     Indication: SUICIDE ATTEMPT
     Route: 048
  3. ACETAMINOPHEN. [Suspect]
     Active Substance: ACETAMINOPHEN
     Indication: SUICIDE ATTEMPT
     Route: 048
  4. MECLIZINE [Suspect]
     Active Substance: MECLIZINE\MECLIZINE HYDROCHLORIDE
     Indication: SUICIDE ATTEMPT
     Route: 048
  5. CLONAZEPAM. [Suspect]
     Active Substance: CLONAZEPAM
     Indication: SUICIDE ATTEMPT
     Route: 048

REACTIONS (1)
  - Toxicity to various agents [Fatal]
